FAERS Safety Report 5043600-0 (Version None)
Quarter: 2006Q2

REPORT INFORMATION
  Report Type: 
  Country: None (occurrence: None)
  Receive Date: 20060628
  Receipt Date: 20060607
  Transmission Date: 20061013
  Serious: Yes (Hospitalization)
  Sender: FDA-Public Use
  Company Number: PHRM2006FR01749

PATIENT
  Age: 28 Year
  Sex: Female

DRUGS (5)
  1. TEGRETOL-XR [Suspect]
     Indication: EPILEPSY
     Dosage: 200 MG,  BID ORAL
     Route: 048
     Dates: end: 20060227
  2. LIORESAL [Suspect]
     Indication: QUADRIPLEGIA
     Dates: start: 20050215
  3. FOLIC ACID [Concomitant]
  4. FERROUS SULFATE TAB [Concomitant]
  5. INIPOMP (PANTOPRAZOLE) TABLET [Concomitant]

REACTIONS (11)
  - ANTICONVULSANT DRUG LEVEL ABOVE THERAPEUTIC [None]
  - ARTERIOPATHIC DISEASE [None]
  - CHOKING [None]
  - DYSPHAGIA [None]
  - GENERAL NUTRITION DISORDER [None]
  - INTERCOSTAL RETRACTION [None]
  - LEGIONELLA SEROLOGY POSITIVE [None]
  - MUSCLE SPASTICITY [None]
  - PNEUMONIA ASPIRATION [None]
  - RED BLOOD CELL SEDIMENTATION RATE INCREASED [None]
  - SOMNOLENCE [None]
